FAERS Safety Report 19381107 (Version 1)
Quarter: 2021Q2

REPORT INFORMATION
  Report Type: Spontaneous
  Country: US (occurrence: US)
  Receive Date: 20210607
  Receipt Date: 20210607
  Transmission Date: 20210717
  Serious: Yes (Hospitalization, Other)
  Sender: FDA-Public Use
  Company Number: US-APOTEX-2021AP013221

PATIENT
  Age: 15 Year
  Sex: Female
  Weight: 53.1 kg

DRUGS (1)
  1. DIPHENHYDRAMINE. [Suspect]
     Active Substance: DIPHENHYDRAMINE
     Indication: PRODUCT USED FOR UNKNOWN INDICATION
     Dosage: UNK; 1250?2500 MG
     Route: 065

REACTIONS (10)
  - Disorientation [Recovered/Resolved]
  - Hallucination [Unknown]
  - Agitation [Recovered/Resolved]
  - Mucosal dryness [Unknown]
  - Electrocardiogram QT prolonged [Unknown]
  - Aggression [Unknown]
  - Toxicity to various agents [Unknown]
  - Hypertension [Unknown]
  - Tachycardia [Unknown]
  - Mydriasis [Unknown]
